FAERS Safety Report 5339395-3 (Version None)
Quarter: 2007Q2

REPORT INFORMATION
  Report Type: 
  Country: None (occurrence: None)
  Receive Date: 20070525
  Receipt Date: 20070516
  Transmission Date: 20071010
  Serious: Yes (Hospitalization)
  Sender: FDA-Public Use
  Company Number: 2007AL001995

PATIENT
  Age: 46 Year
  Sex: Male

DRUGS (8)
  1. CARBAMAZEPINE [Suspect]
     Indication: AGITATION
     Dosage: 600 MG; QD
  2. LITHIUM CARBONATE [Concomitant]
  3. PROMETHAZINE [Concomitant]
  4. HYDROCHLORIDE [Concomitant]
  5. FLUNITRAZEPAM [Concomitant]
  6. BULOTIZOLAM [Concomitant]
  7. NIMETAZEPAM [Concomitant]
  8. OXATOMIDE [Concomitant]

REACTIONS (4)
  - BLOOD CREATINE PHOSPHOKINASE INCREASED [None]
  - BLOOD SODIUM INCREASED [None]
  - DIABETES INSIPIDUS [None]
  - NERVOUS SYSTEM DISORDER [None]
